FAERS Safety Report 11046913 (Version 1)
Quarter: 2015Q2

REPORT INFORMATION
  Report Type: Spontaneous
  Country: FI (occurrence: FI)
  Receive Date: 20150420
  Receipt Date: 20150420
  Transmission Date: 20150821
  Serious: Yes (Hospitalization)
  Sender: FDA-Public Use
  Company Number: FI-JNJFOC-20150406060

PATIENT
  Age: 6 Decade
  Sex: Female

DRUGS (8)
  1. KETIPINOR (QUETIAPINE) [Suspect]
     Active Substance: QUETIAPINE
     Indication: PRODUCT USED FOR UNKNOWN INDICATION
     Route: 065
  2. KALCIPOS-D [Concomitant]
     Active Substance: CALCIUM CARBONATE\CHOLECALCIFEROL
     Indication: PRODUCT USED FOR UNKNOWN INDICATION
     Route: 065
  3. FROIDIR [Suspect]
     Active Substance: CLOZAPINE
     Indication: PRODUCT USED FOR UNKNOWN INDICATION
     Route: 065
  4. OVESTIN [Concomitant]
     Active Substance: ESTRIOL
     Indication: PRODUCT USED FOR UNKNOWN INDICATION
     Route: 065
  5. NUTRIDRINK [Concomitant]
     Indication: PRODUCT USED FOR UNKNOWN INDICATION
     Route: 065
  6. XEPLION [Suspect]
     Active Substance: PALIPERIDONE PALMITATE
     Indication: SCHIZOPHRENIA, DISORGANISED TYPE
     Route: 030
     Dates: start: 20140702
  7. TEMESTA [Concomitant]
     Active Substance: LORAZEPAM
     Indication: PRODUCT USED FOR UNKNOWN INDICATION
     Dosage: 2+1+2
     Route: 065
  8. EXELON [Concomitant]
     Active Substance: RIVASTIGMINE TARTRATE
     Dosage: 2 X 2
     Route: 065

REACTIONS (8)
  - Anaemia [Recovered/Resolved]
  - Orthostatic hypotension [Recovered/Resolved]
  - Pneumonia [Recovered/Resolved]
  - Drooling [Recovered/Resolved]
  - Condition aggravated [Recovered/Resolved]
  - Catatonia [Recovered/Resolved]
  - Hypotension [Recovered/Resolved]
  - Pyelonephritis [Recovered/Resolved]
